FAERS Safety Report 6195765-5 (Version None)
Quarter: 2009Q2

REPORT INFORMATION
  Report Type: 
  Country: None (occurrence: None)
  Receive Date: 20090520
  Receipt Date: 20090511
  Transmission Date: 20091009
  Serious: Yes (Hospitalization, Other)
  Sender: FDA-Public Use
  Company Number: US-JNJFOC-20081206273

PATIENT
  Sex: Female
  Weight: 90.72 kg

DRUGS (8)
  1. REMICADE [Suspect]
     Route: 042
  2. REMICADE [Suspect]
     Route: 042
  3. REMICADE [Suspect]
     Indication: COLITIS ULCERATIVE
     Route: 042
  4. THYROID MEDICATION [Concomitant]
  5. DIGOXIN [Concomitant]
  6. BLOOD PRESSURE MEDICATION [Concomitant]
  7. PRILOSEC [Concomitant]
  8. CLARITIN [Concomitant]

REACTIONS (5)
  - ATRIAL FIBRILLATION [None]
  - COLITIS ULCERATIVE [None]
  - RASH [None]
  - SKIN INFECTION [None]
  - THROMBOPHLEBITIS [None]
